FAERS Safety Report 4779732-1 (Version None)
Quarter: 2005Q3

REPORT INFORMATION
  Report Type: 
  Country: None (occurrence: None)
  Receive Date: 20050914
  Receipt Date: 20041026
  Transmission Date: 20060218
  Serious: Yes (Hospitalization)
  Sender: FDA-Public Use
  Company Number: 163-20785-04100795

PATIENT
  Age: 72 Year
  Sex: Male
  Weight: 85.5 kg

DRUGS (8)
  1. THALOMID [Suspect]
     Indication: POST HERPETIC NEURALGIA
     Dosage: 100 MG, QHS, ORAL
     Route: 048
     Dates: start: 20041005, end: 20041021
  2. LISINOPRIL [Concomitant]
  3. HCTZ (HYROCHLOROTHIAZIDE) [Concomitant]
  4. ASPIRIN [Concomitant]
  5. ZINC (ZINC) [Concomitant]
  6. LYSINE (LYSINE) [Concomitant]
  7. YEAST (YEAST DRIED) [Concomitant]
  8. C. PEPPER [Concomitant]

REACTIONS (3)
  - CHEST PAIN [None]
  - DYSPNOEA [None]
  - ENDOCARDITIS [None]
